FAERS Safety Report 6108763-4 (Version None)
Quarter: 2009Q1

REPORT INFORMATION
  Report Type: 
  Country: None (occurrence: None)
  Receive Date: 20090310
  Receipt Date: 20090305
  Transmission Date: 20090719
  Serious: No
  Sender: FDA-Public Use
  Company Number: KR-JNJFOC-20090301674

PATIENT
  Age: 52 Year
  Sex: Male

DRUGS (5)
  1. DURAGESIC-100 [Suspect]
     Dosage: ONCE EVERY TWO OR THREE DAYS
     Route: 062
  2. DURAGESIC-100 [Suspect]
     Indication: PAIN
     Route: 062
  3. ANALGESIA [Concomitant]
     Indication: ANALGESIA
  4. MUSCLE RELAXANT [Concomitant]
     Indication: MUSCLE RELAXANT THERAPY
  5. AGENT FOR CONSTIPATION [Concomitant]
     Indication: CONSTIPATION

REACTIONS (5)
  - CONSTIPATION [None]
  - DIZZINESS [None]
  - DRUG INEFFECTIVE [None]
  - DRUG PRESCRIBING ERROR [None]
  - INCORRECT DRUG ADMINISTRATION DURATION [None]
